FAERS Safety Report 6114812-X (Version None)
Quarter: 2009Q1

REPORT INFORMATION
  Report Type: 
  Country: None (occurrence: None)
  Receive Date: 20090311
  Receipt Date: 20080310
  Transmission Date: 20090719
  Serious: Yes (Other)
  Sender: FDA-Public Use
  Company Number: US200802006902

PATIENT
  Sex: Female

DRUGS (5)
  1. GEMZAR [Suspect]
     Indication: PANCREATIC CARCINOMA
     Dosage: 1000 MG, OTHER, 850 MG, OTHER, 750 MG, EVERY OTHER WEEK
     Dates: start: 20080201, end: 20080101
  2. GEMZAR [Suspect]
     Indication: PANCREATIC CARCINOMA
     Dosage: 1000 MG, OTHER, 850 MG, OTHER, 750 MG, EVERY OTHER WEEK
     Dates: start: 20080207, end: 20080207
  3. GEMZAR [Suspect]
     Indication: PANCREATIC CARCINOMA
     Dosage: 1000 MG, OTHER, 850 MG, OTHER, 750 MG, EVERY OTHER WEEK
     Dates: start: 20080101
  4. TOFRANIL [Concomitant]
  5. DECADRON /CAN/ (DEXAMETHASONE) [Concomitant]

REACTIONS (1)
  - NEUTROPHIL COUNT DECREASED [None]
